FAERS Safety Report 18917099 (Version 1)
Quarter: 2021Q1

REPORT INFORMATION
  Report Type: Spontaneous
  Country: US (occurrence: US)
  Receive Date: 20210219
  Receipt Date: 20210219
  Transmission Date: 20210420
  Serious: No
  Sender: FDA-Public Use
  Company Number: US-BAYER-2021-061455

PATIENT
  Age: 80 Year
  Sex: Male

DRUGS (2)
  1. ALEVE [Concomitant]
     Active Substance: NAPROXEN SODIUM
     Indication: PAIN
     Dosage: 1 DF, OM
     Route: 048
     Dates: start: 20210209, end: 20210210
  2. MIRALAX [Suspect]
     Active Substance: POLYETHYLENE GLYCOL 3350
     Indication: GASTROINTESTINAL DISORDER
     Dosage: UNK
     Route: 048
     Dates: start: 20210206, end: 20210210

REACTIONS (1)
  - Infrequent bowel movements [Unknown]

NARRATIVE: CASE EVENT DATE: 20210210
